FAERS Safety Report 4588593-5 (Version None)
Quarter: 2005Q1

REPORT INFORMATION
  Report Type: 
  Country: None (occurrence: None)
  Receive Date: 20050218
  Receipt Date: 20050207
  Transmission Date: 20050727
  Serious: Yes (Hospitalization)
  Sender: FDA-Public Use
  Company Number: 2005026292

PATIENT
  Age: 46 Year
  Sex: Male

DRUGS (4)
  1. DEXTROMETHORPHAN HYDROBROMIDE [Suspect]
     Dosage: ORAL
     Route: 048
     Dates: start: 20020101, end: 20021001
  2. TRAMADOL HCL [Suspect]
     Indication: BACK PAIN
     Dosage: 150 MG/DAY, ORAL
     Route: 048
  3. DIAZEPAM [Concomitant]
  4. CELECOXIB (CELECOXIB) [Concomitant]

REACTIONS (7)
  - COLITIS ISCHAEMIC [None]
  - COLONIC STENOSIS [None]
  - DIZZINESS [None]
  - GASTRITIS [None]
  - GASTROINTESTINAL NECROSIS [None]
  - HELICOBACTER PYLORI IDENTIFICATION TEST POSITIVE [None]
  - HYPERHIDROSIS [None]
